FAERS Safety Report 6507931-7 (Version None)
Quarter: 2009Q4

REPORT INFORMATION
  Report Type: 
  Country: None (occurrence: None)
  Receive Date: 20091221
  Receipt Date: 20091214
  Transmission Date: 20100525
  Serious: Yes (Other)
  Sender: FDA-Public Use
  Company Number: B0590046A

PATIENT
  Age: 38 Year
  Sex: Male

DRUGS (1)
  1. IMIJECT [Suspect]
     Indication: CLUSTER HEADACHE
     Dosage: 1INJ TWICE PER DAY
     Route: 058
     Dates: start: 20020101

REACTIONS (4)
  - AGGRESSION [None]
  - DEPENDENCE [None]
  - DRUG ABUSE [None]
  - HEADACHE [None]
